FAERS Safety Report 12075020 (Version 2)
Quarter: 2016Q1

REPORT INFORMATION
  Report Type: Spontaneous
  Country: US (occurrence: US)
  Receive Date: 20160212
  Receipt Date: 20160218
  Transmission Date: 20160526
  Serious: No
  Sender: FDA-Public Use
  Company Number: US-GLAXOSMITHKLINE-US2016019902

PATIENT
  Age: 36 Year
  Sex: Female
  Weight: 136 kg

DRUGS (1)
  1. EQUATE NICOTINE [Suspect]
     Active Substance: NICOTINE
     Indication: SMOKING CESSATION THERAPY
     Dosage: 21 MG, UNK
     Dates: start: 20160101, end: 20160203

REACTIONS (2)
  - Application site urticaria [Recovered/Resolved]
  - Application site rash [Recovered/Resolved]
